FAERS Safety Report 10266687 (Version 1)
Quarter: 2014Q2

REPORT INFORMATION
  Report Type: Spontaneous
  Country: US (occurrence: None)
  Receive Date: 20140625
  Receipt Date: 20140625
  Transmission Date: 20141212
  Serious: Yes (Life-Threatening, Hospitalization)
  Sender: FDA-Public Use
  Company Number: None

PATIENT
  Age: 77 Year
  Sex: Female
  Weight: 83.92 kg

DRUGS (3)
  1. OLANZIPINE [Suspect]
     Indication: SOLILOQUY
     Dosage: ONE PILL TWICE DAILY TAKEN BY MOUTH
     Route: 048
     Dates: start: 20100114, end: 20140205
  2. OLANZIPINE [Suspect]
     Indication: ANGER
     Dosage: ONE PILL TWICE DAILY TAKEN BY MOUTH
     Route: 048
     Dates: start: 20100114, end: 20140205
  3. OLANZIPINE [Suspect]
     Indication: AFFECTIVE DISORDER
     Dosage: ONE PILL TWICE DAILY TAKEN BY MOUTH
     Route: 048
     Dates: start: 20100114, end: 20140205

REACTIONS (2)
  - Hypothermia [None]
  - Convulsion [None]
